FAERS Safety Report 10582281 (Version 2)
Quarter: 2014Q4

REPORT INFORMATION
  Report Type: Report from Study
  Country: ES (occurrence: ES)
  Receive Date: 20141113
  Receipt Date: 20141219
  Transmission Date: 20150529
  Serious: Yes (Death, Life-Threatening, Hospitalization)
  Sender: FDA-Public Use
  Company Number: ES-TEVA-520905ISR

PATIENT
  Age: 59 Year
  Sex: Female

DRUGS (4)
  1. GEMCITABINE [Suspect]
     Active Substance: GEMCITABINE\GEMCITABINE HYDROCHLORIDE
     Dates: start: 2012, end: 201206
  2. MYOCET 50 MG POLVO Y PREMEZCLAS CONCENTRADO PARA DISPERSION LIPOSOMICA [Suspect]
     Active Substance: DOXORUBICIN
     Dates: start: 20120101, end: 20120322
  3. PACLITAXEL. [Suspect]
     Active Substance: PACLITAXEL
     Indication: NEOPLASM PROGRESSION
     Route: 042
     Dates: start: 2011
  4. BEVACIZUMAB [Suspect]
     Active Substance: BEVACIZUMAB
     Route: 042
     Dates: start: 2011

REACTIONS (2)
  - Pulmonary embolism [Fatal]
  - Pneumonitis [Fatal]

NARRATIVE: CASE EVENT DATE: 20120409
